FAERS Safety Report 6908995-9 (Version None)
Quarter: 2010Q3

REPORT INFORMATION
  Report Type: 
  Country: None (occurrence: None)
  Receive Date: 20100805
  Receipt Date: 20100716
  Transmission Date: 20110219
  Serious: Yes (Hospitalization)
  Sender: FDA-Public Use
  Company Number: US-BAYER-201013584NA

PATIENT
  Age: 49 Year
  Sex: Female
  Weight: 79 kg

DRUGS (3)
  1. YAZ [Suspect]
     Indication: MENSTRUATION IRREGULAR
     Route: 048
     Dates: start: 20071101, end: 20080125
  2. LEXAPRO [Concomitant]
  3. TYLENOL PM [Concomitant]

REACTIONS (7)
  - ABASIA [None]
  - DEEP VEIN THROMBOSIS [None]
  - OEDEMA PERIPHERAL [None]
  - PULMONARY EMBOLISM [None]
  - PULMONARY INFARCTION [None]
  - SKIN DISCOLOURATION [None]
  - THROMBOSIS [None]
